FAERS Safety Report 5423634-4 (Version None)
Quarter: 2007Q3

REPORT INFORMATION
  Report Type: 
  Country: None (occurrence: None)
  Receive Date: 20070727
  Receipt Date: 20070605
  Transmission Date: 20080115
  Serious: Yes (Hospitalization, Other)
  Sender: FDA-Public Use
  Company Number: USEN-73VR32

PATIENT
  Age: 45 Year
  Sex: Female

DRUGS (2)
  1. DURAPREP [Suspect]
     Indication: PREOPERATIVE CARE
     Dosage: 26 ML, TOPICAL
     Route: 061
  2. TOPICAL PAIN RELIEVER [Concomitant]

REACTIONS (3)
  - ASTHMA [None]
  - DYSPNOEA [None]
  - HYPERSENSITIVITY [None]
